FAERS Safety Report 21324998 (Version 3)
Quarter: 2022Q3

REPORT INFORMATION
  Report Type: Spontaneous
  Country: CH (occurrence: CH)
  Receive Date: 20220912
  Receipt Date: 20220920
  Transmission Date: 20221026
  Serious: No
  Sender: FDA-Public Use
  Company Number: CH-SA-SAC20220720000772

PATIENT
  Age: 58 Year
  Sex: Female

DRUGS (1)
  1. ENOXAPARIN SODIUM [Suspect]
     Active Substance: ENOXAPARIN SODIUM
     Dosage: UNK, BID
     Dates: start: 20220714

REACTIONS (2)
  - Injury associated with device [Unknown]
  - Device issue [Unknown]
